FAERS Safety Report 20231514 (Version 1)
Quarter: 2021Q4

REPORT INFORMATION
  Report Type: Spontaneous
  Country: US (occurrence: US)
  Receive Date: 20211227
  Receipt Date: 20211227
  Transmission Date: 20220303
  Serious: No
  Sender: FDA-Public Use
  Company Number: US-Accord-234187

PATIENT
  Sex: Male
  Weight: 77.11 kg

DRUGS (1)
  1. FINASTERIDE [Suspect]
     Active Substance: FINASTERIDE
     Indication: Alopecia
     Dosage: STRENGTH: 1MG, ONCE A DAY
     Route: 048
     Dates: start: 202103, end: 202104

REACTIONS (1)
  - Product dispensing error [Unknown]
